FAERS Safety Report 6979448-7 (Version None)
Quarter: 2010Q3

REPORT INFORMATION
  Report Type: 
  Country: None (occurrence: None)
  Receive Date: 20100910
  Receipt Date: 20100910
  Transmission Date: 20110219
  Serious: Yes (Other)
  Sender: FDA-Public Use
  Company Number: None

PATIENT
  Age: 54 Year
  Sex: Female
  Weight: 63.5036 kg

DRUGS (1)
  1. AMBIEN / ZOLPIDEM 10 MG - GENERIC [Suspect]
     Indication: INSOMNIA
     Dosage: 10MG QHS PO NIGHTLY
     Route: 048

REACTIONS (4)
  - AMNESIA [None]
  - IMPRISONMENT [None]
  - ROAD TRAFFIC ACCIDENT [None]
  - SOMNAMBULISM [None]
